FAERS Safety Report 15309874 (Version 1)
Quarter: 2018Q4

REPORT INFORMATION
  Report Type: Spontaneous
  Country: RU (occurrence: RU)
  Receive Date: 20180823
  Receipt Date: 20180823
  Transmission Date: 20190204
  Serious: Yes (Hospitalization)
  Sender: FDA-Public Use
  Company Number: RU-TEVA-2018-RU-947793

PATIENT
  Age: 56 Year
  Sex: Male

DRUGS (1)
  1. VALZ H (80 + 12.5 MG) [Suspect]
     Active Substance: HYDROCHLOROTHIAZIDE\VALSARTAN
     Route: 065

REACTIONS (3)
  - Malaise [Unknown]
  - Pallor [Unknown]
  - Blood pressure decreased [Unknown]
